FAERS Safety Report 6495966-2 (Version None)
Quarter: 2009Q4

REPORT INFORMATION
  Report Type: 
  Country: None (occurrence: None)
  Receive Date: 20091214
  Receipt Date: 20090908
  Transmission Date: 20100525
  Serious: No
  Sender: FDA-Public Use
  Company Number: US-BRISTOL-MYERS SQUIBB COMPANY-14770416

PATIENT
  Age: 8 Decade
  Sex: Female

DRUGS (2)
  1. ABILIFY [Suspect]
     Indication: DELIRIUM
  2. FLUOROQUINOLONE [Concomitant]
     Indication: URINARY TRACT INFECTION

REACTIONS (1)
  - HYPOGLYCAEMIA [None]
